FAERS Safety Report 16539070 (Version 1)
Quarter: 2019Q3

REPORT INFORMATION
  Report Type: Spontaneous
  Country: US (occurrence: US)
  Receive Date: 20190524
  Receipt Date: 20190524
  Transmission Date: 20191004
  Serious: Yes (Hospitalization)
  Sender: FDA-Public Use
  Company Number: None

PATIENT
  Age: 56 Year
  Sex: Female

DRUGS (1)
  1. CAPECITABINE TAB 500MG [Suspect]
     Active Substance: CAPECITABINE
     Dosage: ?          OTHER
     Route: 048
     Dates: start: 20190501

REACTIONS (3)
  - Diarrhoea [None]
  - Loss of consciousness [None]
  - Dehydration [None]

NARRATIVE: CASE EVENT DATE: 20190522
